FAERS Safety Report 17936551 (Version 1)
Quarter: 2020Q2

REPORT INFORMATION
  Report Type: Spontaneous
  Country: CA (occurrence: CA)
  Receive Date: 20200624
  Receipt Date: 20200624
  Transmission Date: 20200714
  Serious: Yes (Life-Threatening, Hospitalization)
  Sender: FDA-Public Use
  Company Number: CA-TEVA-2020-CA-1792097

PATIENT
  Age: 31 Year
  Sex: Male
  Weight: 95.34 kg

DRUGS (2)
  1. AMOXICILLIN. [Suspect]
     Active Substance: AMOXICILLIN
     Indication: DENTAL CARE
     Dosage: 1500 MILLIGRAM DAILY;
     Route: 048
  2. TYLENOL [Concomitant]
     Active Substance: ACETAMINOPHEN

REACTIONS (3)
  - Pyrexia [Unknown]
  - Asthenia [Unknown]
  - Toxic epidermal necrolysis [Unknown]
